FAERS Safety Report 20019324 (Version 1)
Quarter: 2021Q4

REPORT INFORMATION
  Report Type: Spontaneous
  Country: CN (occurrence: CN)
  Receive Date: 20211101
  Receipt Date: 20211101
  Transmission Date: 20220303
  Serious: Yes (Life-Threatening, Hospitalization)
  Sender: FDA-Public Use
  Company Number: CN-LUPIN PHARMACEUTICALS INC.-2021-21192

PATIENT
  Age: 38 Year
  Sex: Female

DRUGS (12)
  1. METHYLPREDNISOLONE [Suspect]
     Active Substance: METHYLPREDNISOLONE
     Indication: Stevens-Johnson syndrome
     Dosage: 80 MILLIGRAM, QD
     Route: 042
  2. IMMUNE GLOBULIN NOS [Suspect]
     Active Substance: IMMUNE GLOBULIN NOS
     Indication: Stevens-Johnson syndrome
     Dosage: 0.4 GRAM PER KILOGRAM, QD
     Route: 042
  3. SINTILIMAB [Concomitant]
     Active Substance: SINTILIMAB
     Indication: Cervix carcinoma stage IV
     Dosage: 200 MILLIGRAM 21-DAY CYCLE INTERVAL; DISCONTINUED IN THIRD CYCLE AND RESTARTED IN THE FOURTH CYCLE
     Route: 065
     Dates: start: 201908
  4. SINTILIMAB [Concomitant]
     Active Substance: SINTILIMAB
     Indication: Squamous cell carcinoma
  5. TORIPALIMAB [Concomitant]
     Active Substance: TORIPALIMAB
     Indication: Cervix carcinoma stage IV
     Dosage: 240 MILLIGRAM (AT 21-DAY CYCLE INTERVAL; IN THIRD CYCLE)
     Route: 065
     Dates: start: 20191001
  6. TORIPALIMAB [Concomitant]
     Active Substance: TORIPALIMAB
     Indication: Squamous cell carcinoma
  7. PACLITAXEL [Concomitant]
     Active Substance: PACLITAXEL
     Indication: Cervix carcinoma stage IV
     Dosage: 240 MILLIGRAM (21-DAY CYCLE INTERVAL)
     Route: 042
     Dates: start: 201908
  8. PACLITAXEL [Concomitant]
     Active Substance: PACLITAXEL
     Indication: Squamous cell carcinoma
  9. CISPLATIN [Concomitant]
     Active Substance: CISPLATIN
     Indication: Cervix carcinoma stage IV
     Dosage: 90 MILLIGRAM  (21-DAY CYCLE INTERVAL)
     Route: 042
     Dates: start: 201908
  10. CISPLATIN [Concomitant]
     Active Substance: CISPLATIN
     Indication: Squamous cell carcinoma
  11. NEDAPLATIN [Concomitant]
     Active Substance: NEDAPLATIN
     Indication: Cervix carcinoma stage IV
     Dosage: 135 MILLIGRAM (AT 21-DAY CYCLE INTERVAL)
     Route: 042
     Dates: start: 20191021
  12. NEDAPLATIN [Concomitant]
     Active Substance: NEDAPLATIN
     Indication: Squamous cell carcinoma

REACTIONS (1)
  - Therapy non-responder [Unknown]
